FAERS Safety Report 4547850-9 (Version None)
Quarter: 2004Q4

REPORT INFORMATION
  Report Type: 
  Country: None (occurrence: None)
  Receive Date: 20041227
  Receipt Date: 20041012
  Transmission Date: 20050328
  Serious: No
  Sender: FDA-Public Use
  Company Number: 04P-163-0277105-00

PATIENT
  Age: 76 Year
  Sex: Female
  Weight: 52.6173 kg

DRUGS (7)
  1. HUMIRA [Suspect]
     Indication: RHEUMATOID ARTHRITIS
     Dosage: 40 MG, 1 IN 2 WK, INJECTION
     Dates: start: 20040401, end: 20041002
  2. PREDISONE [Concomitant]
  3. ESTROENS CONJUGATED [Concomitant]
  4. BUPROPION HYDROCHLORIDE [Concomitant]
  5. GLUCOSAMINE [Concomitant]
  6. MULTI-VITAMINS [Concomitant]
  7. RAMIPRIL [Concomitant]

REACTIONS (1)
  - DIARRHOEA [None]
